FAERS Safety Report 4526460-3 (Version None)
Quarter: 2004Q4

REPORT INFORMATION
  Report Type: 
  Country: None (occurrence: None)
  Receive Date: 20041214
  Receipt Date: 20041130
  Transmission Date: 20050328
  Serious: Yes (Other)
  Sender: FDA-Public Use
  Company Number: DE-MERCK-0412DEU00002

PATIENT
  Age: 73 Year
  Sex: Female

DRUGS (3)
  1. COZAAR [Suspect]
     Indication: HYPERTENSION
     Route: 048
  2. AMLODIPINE BESYLATE [Concomitant]
     Indication: HYPERTENSION
     Route: 065
     Dates: start: 20041101, end: 20041101
  3. NITROGLYCERIN [Concomitant]
     Route: 065

REACTIONS (3)
  - DIZZINESS [None]
  - DYSSTASIA [None]
  - HYPERTENSIVE CRISIS [None]
